FAERS Safety Report 4509347-1 (Version None)
Quarter: 2004Q4

REPORT INFORMATION
  Report Type: 
  Country: None (occurrence: None)
  Receive Date: 20041123
  Receipt Date: 20041118
  Transmission Date: 20050328
  Serious: Yes (Death, Life-Threatening, Hospitalization)
  Sender: FDA-Public Use
  Company Number: US-MERCK-0411USA03298

PATIENT
  Age: 88 Year
  Sex: Male

DRUGS (4)
  1. VIOXX [Suspect]
     Indication: PAIN
     Route: 048
     Dates: start: 20021226, end: 20030822
  2. OXYCODONE [Concomitant]
     Route: 065
  3. LORTAB [Concomitant]
     Route: 065
  4. FLOMAX [Concomitant]
     Route: 065

REACTIONS (2)
  - ADVERSE EVENT [None]
  - DEATH [None]
